FAERS Safety Report 5775411-2 (Version None)
Quarter: 2008Q2

REPORT INFORMATION
  Report Type: 
  Country: None (occurrence: None)
  Receive Date: 20080613
  Receipt Date: 20080530
  Transmission Date: 20081010
  Serious: Yes (Other)
  Sender: FDA-Public Use
  Company Number: 2008014731

PATIENT
  Age: 30 Year
  Sex: Male

DRUGS (2)
  1. BENADRYL [Suspect]
     Indication: RASH
  2. LEXAPRO [Suspect]
     Dosage: 10 MG DAILY (1 IN 1 D), ORAL
     Route: 048

REACTIONS (3)
  - DISORIENTATION [None]
  - DRUG INTERACTION [None]
  - ROAD TRAFFIC ACCIDENT [None]
